FAERS Safety Report 16842845 (Version 1)
Quarter: 2019Q3

REPORT INFORMATION
  Report Type: Spontaneous
  Country: GB (occurrence: GB)
  Receive Date: 20190924
  Receipt Date: 20190924
  Transmission Date: 20191005
  Serious: Yes (Other)
  Sender: FDA-Public Use
  Company Number: GB-HRAPH01-201900697

PATIENT
  Age: 39 Year
  Sex: Female
  Weight: 135.16 kg

DRUGS (2)
  1. HYPERICUM PERFORATUM [Concomitant]
     Active Substance: HYPERICUM PERFORATUM
     Indication: PRODUCT USED FOR UNKNOWN INDICATION
  2. CDB [ULIPRISTAL ACETATE] [Suspect]
     Active Substance: ULIPRISTAL ACETATE
     Indication: POST COITAL CONTRACEPTION
     Route: 048
     Dates: start: 20190905

REACTIONS (7)
  - Derealisation [Unknown]
  - Conversion disorder [Unknown]
  - Social avoidant behaviour [Unknown]
  - Depersonalisation/derealisation disorder [Unknown]
  - Psychotic disorder [Recovering/Resolving]
  - Aggression [Unknown]
  - Paranoia [Unknown]

NARRATIVE: CASE EVENT DATE: 20190905
